FAERS Safety Report 19743864 (Version 1)
Quarter: 2021Q3

REPORT INFORMATION
  Report Type: Spontaneous
  Country: US (occurrence: US)
  Receive Date: 20210823
  Receipt Date: 20210823
  Transmission Date: 20211014
  Serious: Yes (Other)
  Sender: FDA-Public Use
  Company Number: None

PATIENT
  Sex: Female
  Weight: 71.1 kg

DRUGS (1)
  1. OLANZAPINE. [Suspect]
     Active Substance: OLANZAPINE
     Indication: MENTAL DISORDER
     Dosage: ?          QUANTITY:14 TABLET(S);?
     Route: 048
     Dates: start: 20210811

REACTIONS (3)
  - Bradyphrenia [None]
  - Impaired driving ability [None]
  - Fine motor skill dysfunction [None]
